FAERS Safety Report 5456412-0 (Version None)
Quarter: 2007Q3

REPORT INFORMATION
  Report Type: 
  Country: None (occurrence: None)
  Receive Date: 20070918
  Receipt Date: 20070911
  Transmission Date: 20080115
  Serious: Yes (Death)
  Sender: FDA-Public Use
  Company Number: GB-ELI_LILLY_AND_COMPANY-GB200602003932

PATIENT
  Age: 77 Year
  Sex: Female
  Weight: 51.9 kg

DRUGS (6)
  1. FORTEO [Suspect]
     Indication: OSTEOPOROSIS
     Dosage: 20 UG, UNKNOWN
     Route: 058
     Dates: start: 20050825
  2. ATENOLOL [Concomitant]
     Dosage: 50 MG, UNK
     Route: 048
  3. DIGOXIN [Concomitant]
     Dosage: 125 UG, UNK
     Route: 048
     Dates: start: 19990618
  4. FRUMIL [Concomitant]
     Dosage: 1 D/F, UNK
     Route: 048
     Dates: start: 19990408
  5. WARFARIN SODIUM [Concomitant]
     Dosage: 3 UNK, UNK
     Route: 048
     Dates: start: 19990618
  6. CALCICHEW-D3 [Concomitant]
     Dosage: UNK, UNKNOWN
     Route: 048

REACTIONS (1)
  - MYOCARDIAL INFARCTION [None]
